FAERS Safety Report 21837450 (Version 1)
Quarter: 2023Q1

REPORT INFORMATION
  Report Type: Report from Study
  Country: PL (occurrence: PL)
  Receive Date: 20230109
  Receipt Date: 20230109
  Transmission Date: 20230417
  Serious: Yes (Hospitalization)
  Sender: FDA-Public Use
  Company Number: PL-JNJFOC-20220808519

PATIENT
  Age: 8 Decade
  Sex: Male
  Weight: 87 kg

DRUGS (18)
  1. REVATIO [Suspect]
     Active Substance: SILDENAFIL CITRATE
     Indication: Pulmonary arterial hypertension
     Dosage: 75 MILLIGRAM
     Route: 048
     Dates: start: 20220315
  2. BOSENTAN [Suspect]
     Active Substance: BOSENTAN
     Indication: Pulmonary arterial hypertension
     Dosage: 125 MG, FREQ:.0.5 D
     Route: 048
     Dates: start: 20220315
  3. SELEXIPAG [Suspect]
     Active Substance: SELEXIPAG
     Indication: Pulmonary arterial hypertension
     Dosage: 800 UG, FREQ:.5 D
     Route: 048
     Dates: start: 2022
  4. SELEXIPAG [Suspect]
     Active Substance: SELEXIPAG
     Dosage: 600 UG, FREQ:.5 D
     Route: 048
     Dates: start: 2022
  5. SELEXIPAG [Suspect]
     Active Substance: SELEXIPAG
     Dosage: 200 UG, FREQ:.0.5 D
     Route: 048
     Dates: start: 20220610, end: 2022
  6. SELEXIPAG [Suspect]
     Active Substance: SELEXIPAG
     Dosage: 600 MICROGRAM, BID
     Route: 048
     Dates: start: 202207
  7. SELEXIPAG [Suspect]
     Active Substance: SELEXIPAG
     Dosage: 800 MICROGRAM, BID
     Route: 048
     Dates: start: 202207, end: 202207
  8. ATORVASTATIN CALCIUM [Concomitant]
     Active Substance: ATORVASTATIN CALCIUM
     Indication: Blood cholesterol abnormal
     Dosage: UNK
     Route: 048
     Dates: start: 20220316
  9. POTASSIUM CHLORIDE [Concomitant]
     Active Substance: POTASSIUM CHLORIDE
     Indication: Hypokalaemia
     Dosage: UNK
     Route: 048
     Dates: start: 20220610
  10. TORSEMIDE [Concomitant]
     Active Substance: TORSEMIDE
     Indication: Pulmonary oedema
     Dosage: UNK
     Route: 048
     Dates: start: 20220610
  11. TORSEMIDE [Concomitant]
     Active Substance: TORSEMIDE
     Indication: Renal failure
  12. TORSEMIDE [Concomitant]
     Active Substance: TORSEMIDE
     Indication: Cardiac failure
  13. TORSEMIDE [Concomitant]
     Active Substance: TORSEMIDE
     Indication: Hyperlipidaemia
  14. OXYGEN [Concomitant]
     Active Substance: OXYGEN
     Indication: Oxygen therapy
     Dosage: UNK
     Route: 055
     Dates: start: 20220316
  15. PROPAFENONE HYDROCHLORIDE [Concomitant]
     Active Substance: PROPAFENONE HYDROCHLORIDE
     Indication: Arrhythmia
     Dosage: UNK
     Route: 048
     Dates: start: 20220316
  16. BISOPROLOL [Concomitant]
     Active Substance: BISOPROLOL
     Indication: Left ventricular failure
     Dosage: UNK
     Route: 048
     Dates: start: 20220316
  17. ELIQUIS [Concomitant]
     Active Substance: APIXABAN
     Indication: Pulmonary embolism
     Dosage: UNK
     Route: 048
     Dates: start: 20220316
  18. ELIQUIS [Concomitant]
     Active Substance: APIXABAN
     Indication: Thrombosis prophylaxis

REACTIONS (2)
  - Therapeutic response decreased [Unknown]
  - Hot flush [Recovered/Resolved]

NARRATIVE: CASE EVENT DATE: 20220101
